FAERS Safety Report 21853616 (Version 2)
Quarter: 2023Q1

REPORT INFORMATION
  Report Type: Spontaneous
  Country: US (occurrence: US)
  Receive Date: 20230112
  Receipt Date: 20230220
  Transmission Date: 20230417
  Serious: No
  Sender: FDA-Public Use
  Company Number: US-SANOFI-01436651

PATIENT
  Age: 33 Year
  Sex: Female

DRUGS (2)
  1. DUPIXENT [Suspect]
     Active Substance: DUPILUMAB
     Indication: Dermatitis atopic
     Dosage: UNK UNK, 1X
     Dates: start: 20220428, end: 20220428
  2. DUPIXENT [Suspect]
     Active Substance: DUPILUMAB
     Indication: Eczema
     Dosage: 300 MG, QOW

REACTIONS (14)
  - Headache [Recovering/Resolving]
  - Hypertension [Recovering/Resolving]
  - Nasal dryness [Recovering/Resolving]
  - Oesophageal motility disorder [Recovering/Resolving]
  - Dry mouth [Recovering/Resolving]
  - Ear disorder [Unknown]
  - Photophobia [Unknown]
  - Visual impairment [Unknown]
  - Chest pain [Recovering/Resolving]
  - Dysphagia [Recovering/Resolving]
  - Drug effect less than expected [Unknown]
  - Maternal exposure during pregnancy [Unknown]
  - Inappropriate schedule of product administration [Unknown]
  - Product preparation error [Unknown]

NARRATIVE: CASE EVENT DATE: 20221201
